FAERS Safety Report 14989146 (Version 1)
Quarter: 2018Q2

REPORT INFORMATION
  Report Type: Spontaneous
  Country: US (occurrence: US)
  Receive Date: 20180520
  Receipt Date: 20180520
  Transmission Date: 20180711
  Serious: No
  Sender: FDA-Public Use
  Company Number: None

PATIENT
  Age: 75 Year
  Sex: Male
  Weight: 56.25 kg

DRUGS (2)
  1. TRELEGY ELLIPTA [Suspect]
     Active Substance: FLUTICASONE FUROATE\UMECLIDINIUM BROMIDE\VILANTEROL TRIFENATATE
     Indication: EMPHYSEMA
     Dosage: ?          QUANTITY:14 INHALATION(S);?
     Route: 055
     Dates: start: 20180515, end: 20180515
  2. SPIRIVA HANDIHALER ADVAIR DISKUS [Concomitant]

REACTIONS (7)
  - Pollakiuria [None]
  - Dysuria [None]
  - Chills [None]
  - Heart rate increased [None]
  - Urine flow decreased [None]
  - Peripheral coldness [None]
  - Pyrexia [None]

NARRATIVE: CASE EVENT DATE: 20180515
